FAERS Safety Report 4674074-7 (Version None)
Quarter: 2005Q2

REPORT INFORMATION
  Report Type: 
  Country: None (occurrence: None)
  Receive Date: 20050525
  Receipt Date: 20050516
  Transmission Date: 20051028
  Serious: Yes (Other)
  Sender: FDA-Public Use
  Company Number: 200511912BCC

PATIENT
  Age: 65 Year
  Sex: Male
  Weight: 76.6579 kg

DRUGS (7)
  1. ASPIRIN [Suspect]
     Indication: MYOCARDIAL INFARCTION
     Dosage: 325 MG, QD, ORAL
     Route: 048
     Dates: end: 20010101
  2. ASPIRIN [Suspect]
     Indication: PROPHYLAXIS
     Dosage: 325 MG, QD, ORAL
     Route: 048
     Dates: end: 20010101
  3. BAYER ASPIRIN (ACETYLSALICYCLIC ACID) [Suspect]
     Indication: MYOCARDIAL INFARCTION
     Dosage: 325 MG, QD, ORAL; 81 MG, QD; 81 MG, TIW; 81 MG, TOTAL DAILY
     Route: 048
     Dates: end: 20010101
  4. BAYER ASPIRIN (ACETYLSALICYCLIC ACID) [Suspect]
     Indication: MYOCARDIAL INFARCTION
     Dosage: 325 MG, QD, ORAL; 81 MG, QD; 81 MG, TIW; 81 MG, TOTAL DAILY
     Route: 048
     Dates: start: 20010101, end: 20020429
  5. BAYER ASPIRIN (ACETYLSALICYCLIC ACID) [Suspect]
     Indication: MYOCARDIAL INFARCTION
     Dosage: 325 MG, QD, ORAL; 81 MG, QD; 81 MG, TIW; 81 MG, TOTAL DAILY
     Route: 048
     Dates: start: 20040101, end: 20050401
  6. BAYER ASPIRIN (ACETYLSALICYCLIC ACID) [Suspect]
     Indication: MYOCARDIAL INFARCTION
     Dosage: 325 MG, QD, ORAL; 81 MG, QD; 81 MG, TIW; 81 MG, TOTAL DAILY
     Route: 048
     Dates: start: 20050401
  7. CENTRUM [Concomitant]

REACTIONS (3)
  - COLON CANCER [None]
  - HAEMATOCHEZIA [None]
  - RECTAL CANCER [None]
